FAERS Safety Report 21210691 (Version 1)
Quarter: 2022Q3

REPORT INFORMATION
  Report Type: Spontaneous
  Country: US (occurrence: US)
  Receive Date: 20220815
  Receipt Date: 20220815
  Transmission Date: 20221027
  Serious: No
  Sender: FDA-Public Use
  Company Number: US-BRISTOL-MYERS SQUIBB COMPANY-2022-075869

PATIENT
  Age: 60 Year
  Sex: Female
  Weight: 66.770 kg

DRUGS (6)
  1. ELIQUIS [Suspect]
     Active Substance: APIXABAN
     Indication: Thrombosis
     Route: 048
     Dates: start: 202201
  2. VITAMIN C [Concomitant]
     Active Substance: ASCORBIC ACID
     Indication: Product used for unknown indication
     Route: 065
  3. ZINCO [ZINC] [Concomitant]
     Indication: Product used for unknown indication
     Route: 065
  4. Q-10 CO-ENZYME [Concomitant]
     Indication: Product used for unknown indication
     Route: 065
  5. CHOLECALCIFEROL [Concomitant]
     Active Substance: CHOLECALCIFEROL
     Indication: Product used for unknown indication
     Route: 065
  6. TURMERIC + [Concomitant]
     Indication: Product used for unknown indication
     Route: 065

REACTIONS (5)
  - Pain [Unknown]
  - Skin discolouration [Unknown]
  - COVID-19 [Unknown]
  - Product dose omission issue [Unknown]
  - Lymphadenopathy [Unknown]
